FAERS Safety Report 6554014-6 (Version None)
Quarter: 2010Q1

REPORT INFORMATION
  Report Type: 
  Country: None (occurrence: None)
  Receive Date: 20100125
  Receipt Date: 20100112
  Transmission Date: 20100710
  Serious: Yes (Other)
  Sender: FDA-Public Use
  Company Number: 230603M09USA

PATIENT
  Age: 62 Year
  Sex: Female
  Weight: 73 kg

DRUGS (9)
  1. REBIF [Suspect]
     Indication: MULTIPLE SCLEROSIS
     Dosage: 44 MCG, 3 IN 1 WEEKS, SUBCUTANEOUS
     Route: 058
     Dates: start: 20050606
  2. ASPIRIN [Concomitant]
  3. CALCIUM PLUS VITAMIN D (CALCIUM WITH VITAMIN D) [Concomitant]
  4. LASIX [Concomitant]
  5. LACTIBILUS (ALL OTHER THERAPEUTIC PRODUCTS) [Concomitant]
  6. ZOCOR [Concomitant]
  7. CRANBERRY (VACCINIUM MACROCARPON) [Concomitant]
  8. BACLOFEN [Concomitant]
  9. MULTIVITAMIN PLUS MINERALS (MULTIVITAMIN AND MINERAL SUPPLEMENT) [Concomitant]

REACTIONS (2)
  - GRAND MAL CONVULSION [None]
  - URINARY TRACT INFECTION [None]
